FAERS Safety Report 9562876 (Version 3)
Quarter: 2013Q4

REPORT INFORMATION
  Report Type: Spontaneous
  Country: US (occurrence: US)
  Receive Date: 20130927
  Receipt Date: 20131029
  Transmission Date: 20140711
  Serious: Yes (Other)
  Sender: FDA-Public Use
  Company Number: US-PFIZER INC-US-WYE-H14162710

PATIENT
  Age: 65 Year
  Sex: Female
  Weight: 68.03 kg

DRUGS (4)
  1. ADVIL PM [Suspect]
     Indication: BACK PAIN
     Dosage: 1 LIQUI-GEL NIGHTLY
     Route: 048
     Dates: start: 20100222, end: 20100225
  2. ADVIL PM [Suspect]
     Indication: INSOMNIA
     Dosage: 25 MG, 1X/DAY
     Route: 048
  3. ADVIL PM [Suspect]
     Indication: SLEEP DISORDER
  4. ADVIL PM [Suspect]
     Indication: PAIN

REACTIONS (4)
  - Haematochezia [Recovering/Resolving]
  - Rash [Recovered/Resolved]
  - Abdominal pain upper [Recovered/Resolved]
  - Drug ineffective [Unknown]
